FAERS Safety Report 25599567 (Version 6)
Quarter: 2025Q4

REPORT INFORMATION
  Report Type: Spontaneous
  Country: US (occurrence: US)
  Receive Date: 20250724
  Receipt Date: 20251216
  Transmission Date: 20260119
  Serious: No
  Sender: KARYOPHARM THERAPEUTICS
  Company Number: US-KARYOPHARM-2025KPT100520

PATIENT

DRUGS (15)
  1. SELINEXOR [Suspect]
     Active Substance: SELINEXOR
     Indication: Plasma cell myeloma recurrent
     Dosage: 40 MG WEEKLY
     Route: 048
     Dates: start: 20250719, end: 202510
  2. DEXAMETHASONE [Concomitant]
     Active Substance: DEXAMETHASONE
  3. DULERA [Concomitant]
     Active Substance: FORMOTEROL FUMARATE DIHYDRATE\MOMETASONE FUROATE
  4. ELIQUIS [Concomitant]
     Active Substance: APIXABAN
  5. FLOMAX [Concomitant]
     Active Substance: TAMSULOSIN HYDROCHLORIDE
  6. LANTUS [Concomitant]
     Active Substance: INSULIN GLARGINE
  7. LASIX [Concomitant]
     Active Substance: FUROSEMIDE
  8. LOSARTAN [Concomitant]
     Active Substance: LOSARTAN
  9. METFORMIN [Concomitant]
     Active Substance: METFORMIN HYDROCHLORIDE
  10. NORVASC [Concomitant]
     Active Substance: AMLODIPINE BESYLATE
  11. NOVOLOG [Concomitant]
     Active Substance: INSULIN ASPART
  12. OXYCODONE [Concomitant]
     Active Substance: OXYCODONE
  13. PLAVIX [Concomitant]
     Active Substance: CLOPIDOGREL BISULFATE
  14. SINGULAIR [Concomitant]
     Active Substance: MONTELUKAST SODIUM
  15. VALTREX [Concomitant]
     Active Substance: VALACYCLOVIR HYDROCHLORIDE

REACTIONS (9)
  - Laboratory test abnormal [Unknown]
  - Nasopharyngitis [Unknown]
  - Influenza [Unknown]
  - Nausea [Recovering/Resolving]
  - Diarrhoea [Unknown]
  - Therapeutic response unexpected [Unknown]
  - Inappropriate schedule of product administration [Unknown]
  - Product dose omission issue [Unknown]
  - Product availability issue [Unknown]

NARRATIVE: CASE EVENT DATE: 20250101
